FAERS Safety Report 23534381 (Version 1)
Quarter: 2024Q1

REPORT INFORMATION
  Report Type: Spontaneous
  Country: NL (occurrence: NL)
  Receive Date: 20240217
  Receipt Date: 20240217
  Transmission Date: 20240410
  Serious: Yes (Hospitalization)
  Sender: FDA-Public Use
  Company Number: NL-CELLTRION INC.-2024NL003672

PATIENT

DRUGS (6)
  1. RITUXIMAB [Suspect]
     Active Substance: RITUXIMAB
     Indication: B-cell lymphoma
     Dosage: 100 MILLIGRAM (1X 100MG IV)
     Dates: start: 20231130
  2. PREDNISOLONE [Suspect]
     Active Substance: PREDNISOLONE
     Indication: B-cell lymphoma
     Dosage: 100 MG, EVERY 1 DAY
     Dates: start: 20231130
  3. DOXORUBICIN [Suspect]
     Active Substance: DOXORUBICIN
     Indication: B-cell lymphoma
     Dosage: INF CONC PEG-LIPOSOMAL 100 MG (1X100MG IV)
     Dates: start: 20231130
  4. VINCRISTINE [Suspect]
     Active Substance: VINCRISTINE
     Indication: B-cell lymphoma
     Dosage: 1X 2MG IV
     Dates: start: 20231130
  5. FOLIC ACID [Concomitant]
     Active Substance: FOLIC ACID
     Indication: B-cell lymphoma
     Dosage: TABLET, 5 MG (MILLIGRAM)
  6. METOCLOPRAMIDE [Concomitant]
     Active Substance: METOCLOPRAMIDE
     Indication: B-cell lymphoma
     Dosage: TABLET, 10 MG (MILLIGRAM)

REACTIONS (3)
  - Angular cheilitis [Recovered/Resolved]
  - Mucosal inflammation [Recovered/Resolved]
  - Underdose [Unknown]
